FAERS Safety Report 20123973 (Version 2)
Quarter: 2022Q1

REPORT INFORMATION
  Report Type: Spontaneous
  Country: IT (occurrence: IT)
  Receive Date: 20211129
  Receipt Date: 20220302
  Transmission Date: 20220423
  Serious: Yes (Hospitalization)
  Sender: FDA-Public Use
  Company Number: None

PATIENT
  Age: 18 Year
  Sex: Female

DRUGS (1)
  1. IBUPROFEN [Suspect]
     Active Substance: IBUPROFEN
     Indication: Product used for unknown indication
     Dosage: ; IN TOTAL
     Route: 048
     Dates: start: 20211102, end: 20211102

REACTIONS (4)
  - Skin reaction [Recovering/Resolving]
  - Face oedema [Recovering/Resolving]
  - Hypersensitivity [Recovering/Resolving]
  - Tonsillar erythema [Recovering/Resolving]

NARRATIVE: CASE EVENT DATE: 20211102
